FAERS Safety Report 5865338-X (Version None)
Quarter: 2008Q3

REPORT INFORMATION
  Report Type: 
  Country: None (occurrence: None)
  Receive Date: 20080829
  Receipt Date: 20080826
  Transmission Date: 20090109
  Serious: Yes (Life-Threatening)
  Sender: FDA-Public Use
  Company Number: FR-ASTRAZENECA-2008CG01268

PATIENT
  Age: 14648 Day
  Sex: Male

DRUGS (5)
  1. NEXIUM [Suspect]
     Route: 048
     Dates: start: 20080615, end: 20080809
  2. COVERSYL [Suspect]
     Route: 048
     Dates: start: 20080615, end: 20080807
  3. DOLIPRANE [Suspect]
     Route: 048
     Dates: start: 20080615
  4. PREVISCAN [Suspect]
     Route: 048
     Dates: start: 20080806
  5. ZOLOFT [Suspect]
     Route: 048
     Dates: start: 20080615

REACTIONS (1)
  - NEUTROPENIA [None]
